FAERS Safety Report 8095738-1 (Version None)
Quarter: 2012Q1

REPORT INFORMATION
  Report Type: 
  Country: None (occurrence: None)
  Receive Date: 20120131
  Receipt Date: 20120125
  Transmission Date: 20120608
  Serious: Yes (Other)
  Sender: FDA-Public Use
  Company Number: GR-TEVA-319309ISR

PATIENT

DRUGS (9)
  1. ETOPOSIDE [Suspect]
     Indication: B PRECURSOR TYPE ACUTE LEUKAEMIA
  2. CYCLOPHOSPHAMIDE [Suspect]
     Indication: B PRECURSOR TYPE ACUTE LEUKAEMIA
  3. CLOFIBRATE [Suspect]
     Indication: B PRECURSOR TYPE ACUTE LEUKAEMIA
  4. CYCLOPHOSPHAMIDE [Suspect]
     Indication: T-CELL TYPE ACUTE LEUKAEMIA
  5. MOXICILLIN W/CLAVULANIC ACID [Concomitant]
     Indication: ANTIBIOTIC PROPHYLAXIS
  6. ACYCLOVIR [Concomitant]
     Indication: ANTIVIRAL PROPHYLAXIS
  7. CLOFIBRATE [Suspect]
     Indication: T-CELL TYPE ACUTE LEUKAEMIA
  8. ETOPOSIDE [Suspect]
     Indication: T-CELL TYPE ACUTE LEUKAEMIA
  9. VORICONAZOLE [Concomitant]
     Indication: ANTIFUNGAL PROPHYLAXIS

REACTIONS (6)
  - THROMBOCYTOPENIA [None]
  - HEPATOTOXICITY [None]
  - MUCOSAL INFLAMMATION [None]
  - LUNG INFECTION [None]
  - DISEASE RECURRENCE [None]
  - FEBRILE NEUTROPENIA [None]
